FAERS Safety Report 16834026 (Version 1)
Quarter: 2019Q3

REPORT INFORMATION
  Report Type: Spontaneous
  Country: US (occurrence: US)
  Receive Date: 20190920
  Receipt Date: 20190920
  Transmission Date: 20191005
  Serious: No
  Sender: FDA-Public Use
  Company Number: US-PFIZER INC-2019346120

PATIENT
  Age: 91 Year
  Sex: Female
  Weight: 61 kg

DRUGS (3)
  1. IBRANCE [Suspect]
     Active Substance: PALBOCICLIB
     Indication: BREAST CANCER FEMALE
     Dosage: 75 MG, UNK
  2. IBRANCE [Suspect]
     Active Substance: PALBOCICLIB
     Dosage: 25 MG, 1X/DAY
     Dates: start: 201902, end: 201906
  3. FASLODEX [Concomitant]
     Active Substance: FULVESTRANT
     Dosage: 500 MG, UNK (2 SHOTS 250 MG IN EACH BUTTOCKS)
     Dates: start: 201812

REACTIONS (2)
  - Alopecia [Unknown]
  - Fatigue [Unknown]
